FAERS Safety Report 17319873 (Version 4)
Quarter: 2020Q4

REPORT INFORMATION
  Report Type: Spontaneous
  Country: US (occurrence: US)
  Receive Date: 20200126
  Receipt Date: 20201021
  Transmission Date: 20210113
  Serious: No
  Sender: FDA-Public Use
  Company Number: US-TEVA-2020-US-1173830

PATIENT
  Sex: Female

DRUGS (4)
  1. ATENOLOL TEVA [Suspect]
     Active Substance: ATENOLOL
     Indication: ATRIAL FIBRILLATION
  2. ATENOLOL TEVA [Suspect]
     Active Substance: ATENOLOL
     Indication: MITRAL VALVE PROLAPSE
     Dosage: 25 MILLIGRAM DAILY; SPLITS THE 50 MG TABLET FOR A 25 MG DOSE DAILY
     Route: 065
     Dates: start: 1985
  3. VITAMIN D [Concomitant]
     Active Substance: VITAMIN D NOS
     Route: 065
  4. MULTIVITAMIN [Concomitant]
     Active Substance: VITAMINS
     Route: 065

REACTIONS (14)
  - Somnolence [Unknown]
  - Asthenia [Unknown]
  - Nervousness [Unknown]
  - Vision blurred [Unknown]
  - Illness [Unknown]
  - Nausea [Unknown]
  - Dizziness [Unknown]
  - Blood glucose decreased [Unknown]
  - Hyperhidrosis [Unknown]
  - Headache [Unknown]
  - Anxiety [Unknown]
  - Insulin resistance [Unknown]
  - Dizziness [Unknown]
  - Agitation [Unknown]

NARRATIVE: CASE EVENT DATE: 201910
